FAERS Safety Report 4545499-5 (Version None)
Quarter: 2005Q1

REPORT INFORMATION
  Report Type: 
  Country: None (occurrence: None)
  Receive Date: 20050105
  Receipt Date: 20041213
  Transmission Date: 20050727
  Serious: Yes (Hospitalization)
  Sender: FDA-Public Use
  Company Number: FR-MERCK-0412FRA00043

PATIENT
  Age: 61 Year
  Sex: Male

DRUGS (5)
  1. COZAAR [Suspect]
     Indication: HYPERTENSION
     Route: 048
     Dates: start: 20041101, end: 20041211
  2. DANAPAROID SODIUM [Concomitant]
     Indication: THROMBOPHLEBITIS
     Route: 065
  3. CLONAZEPAM [Concomitant]
     Route: 048
  4. TRAMADOL HYDROCHLORIDE [Concomitant]
     Route: 048
  5. HEPARIN [Concomitant]
     Indication: THROMBOPHLEBITIS
     Route: 051

REACTIONS (4)
  - ANTI-PLATELET ANTIBODY POSITIVE [None]
  - DRUG TOXICITY [None]
  - NEUTROPENIA [None]
  - THROMBOCYTOPENIA [None]
